FAERS Safety Report 12270591 (Version 1)
Quarter: 2016Q2

REPORT INFORMATION
  Report Type: Spontaneous
  Country: US (occurrence: None)
  Receive Date: 20160414
  Receipt Date: 20160414
  Transmission Date: 20160815
  Serious: Yes (Death)
  Sender: FDA-Public Use
  Company Number: None

PATIENT
  Age: 89 Year
  Sex: Male
  Weight: 76.8 kg

DRUGS (2)
  1. WARFARIN, 5 MG [Suspect]
     Active Substance: WARFARIN
     Indication: TRANSIENT ISCHAEMIC ATTACK
     Route: 048
  2. AGGRENOX [Suspect]
     Active Substance: ASPIRIN\DIPYRIDAMOLE
     Indication: MYOCARDIAL INFARCTION
     Route: 048

REACTIONS (5)
  - Urosepsis [None]
  - International normalised ratio increased [None]
  - Haemoglobin decreased [None]
  - Gastrointestinal haemorrhage [None]
  - Shock haemorrhagic [None]

NARRATIVE: CASE EVENT DATE: 20151217
